FAERS Safety Report 6741377-1 (Version None)
Quarter: 2010Q2

REPORT INFORMATION
  Report Type: 
  Country: None (occurrence: None)
  Receive Date: 20100526
  Receipt Date: 20100311
  Transmission Date: 20101027
  Serious: Yes (Other)
  Sender: FDA-Public Use
  Company Number: US-PFIZER INC-2009208849

PATIENT
  Sex: Male
  Weight: 77 kg

DRUGS (2)
  1. REVATIO [Suspect]
     Indication: HYPERTENSION
     Dosage: 20 MG, 3X/DAY
     Route: 048
     Dates: start: 20090318, end: 20100210
  2. REVATIO [Suspect]
     Indication: CARDIAC DISORDER

REACTIONS (2)
  - CARDIAC OPERATION [None]
  - HYPERTENSION [None]
